FAERS Safety Report 8576540-0 (Version None)
Quarter: 2012Q3

REPORT INFORMATION
  Report Type: 
  Country: None (occurrence: None)
  Receive Date: 20120725
  Receipt Date: 20120711
  Transmission Date: 20120928
  Serious: Yes (Disabling, Other)
  Sender: FDA-Public Use
  Company Number: 1347902

PATIENT
  Sex: Male

DRUGS (3)
  1. MORPHINE SULFATE [Suspect]
     Indication: ANALGESIC THERAPY
     Dates: start: 20070315
  2. SOLU-CORTEF [Suspect]
     Indication: ANALGESIC THERAPY
     Dates: start: 20070315
  3. PUBIVACCAINE HCL INJ, USP (BUPIVACAINE HYDROCHLORIDE) [Suspect]
     Indication: ANALGESIC THERAPY
     Dates: start: 20070315

REACTIONS (5)
  - ANHEDONIA [None]
  - ECONOMIC PROBLEM [None]
  - PAIN [None]
  - CHONDROLYSIS [None]
  - ANXIETY [None]
